FAERS Safety Report 4402659-1 (Version None)
Quarter: 2004Q3

REPORT INFORMATION
  Report Type: 
  Country: None (occurrence: None)
  Receive Date: 20040715
  Receipt Date: 20040629
  Transmission Date: 20050211
  Serious: Yes (Death)
  Sender: FDA-Public Use
  Company Number: US013379

PATIENT
  Age: 25 Year
  Sex: Male
  Weight: 99.7913 kg

DRUGS (4)
  1. ACTIQ [Suspect]
     Dosage: 400 UG BUCCAL
     Route: 002
  2. ZOLOFT [Concomitant]
  3. XANAX [Concomitant]
  4. ANTIHYPERTENSIVE MEDICATION [Concomitant]

REACTIONS (2)
  - CARDIAC ARREST [None]
  - RESPIRATORY DEPRESSION [None]
